FAERS Safety Report 4470775-4 (Version None)
Quarter: 2004Q4

REPORT INFORMATION
  Report Type: 
  Country: None (occurrence: None)
  Receive Date: 20041006
  Receipt Date: 20040920
  Transmission Date: 20050328
  Serious: Yes (Hospitalization)
  Sender: FDA-Public Use
  Company Number: 2004-DE-03480DE

PATIENT
  Age: 73 Year
  Sex: Male

DRUGS (6)
  1. MICARDIS HCT [Suspect]
     Indication: DIABETES MELLITUS
     Dosage: 40 MG PO
     Route: 048
     Dates: start: 20040209
  2. MICARDIS HCT [Suspect]
     Indication: HYPERTENSION
     Dosage: 40 MG PO
     Route: 048
     Dates: start: 20040209
  3. MICARDIS [Suspect]
     Indication: DIABETES MELLITUS
     Dosage: 80 MG (80 MG) PO
     Route: 048
     Dates: start: 20040428
  4. MICARDIS [Suspect]
     Indication: HYPERTENSION
     Dosage: 80 MG (80 MG) PO
     Route: 048
     Dates: start: 20040428
  5. AMARYL [Concomitant]
  6. REMERGIL (MIRTAZAPINE) (NR) [Concomitant]

REACTIONS (4)
  - BLOOD IMMUNOGLOBULIN E INCREASED [None]
  - DERMATITIS EXFOLIATIVE [None]
  - DRUG ERUPTION [None]
  - PSORIASIS [None]
